FAERS Safety Report 16345485 (Version 1)
Quarter: 2019Q2

REPORT INFORMATION
  Report Type: Spontaneous
  Country: CN (occurrence: CN)
  Receive Date: 20190523
  Receipt Date: 20190523
  Transmission Date: 20190711
  Serious: Yes (Hospitalization, Other)
  Sender: FDA-Public Use
  Company Number: CN-BAXTER-2019BAX009979

PATIENT
  Age: 8 Year
  Sex: Female
  Weight: 25 kg

DRUGS (2)
  1. 0.9% SODIUM CHLORIDE INJECTION [Suspect]
     Active Substance: SODIUM CHLORIDE
     Indication: MEDICATION DILUTION
     Dosage: WITH IFOSFAMIDE FOR INJECTION 2.9 G
     Route: 041
     Dates: start: 20190329, end: 20190402
  2. HOLOXAN [Suspect]
     Active Substance: IFOSFAMIDE
     Indication: OSTEOSARCOMA
     Dosage: DILUTED WITH NORMAL SALINE 500 ML
     Route: 041
     Dates: start: 20190329, end: 20190402

REACTIONS (1)
  - Bone marrow failure [Recovering/Resolving]

NARRATIVE: CASE EVENT DATE: 20190404
